FAERS Safety Report 25927036 (Version 1)
Quarter: 2025Q4

REPORT INFORMATION
  Report Type: Spontaneous
  Country: EU (occurrence: EU)
  Receive Date: 20251015
  Receipt Date: 20251015
  Transmission Date: 20260117
  Serious: Yes (Other)
  Sender: SANOFI AVENTIS
  Company Number: None

PATIENT
  Age: 73 Year
  Sex: Male
  Weight: 87 kg

DRUGS (3)
  1. CLOXACILLIN [Suspect]
     Active Substance: CLOXACILLIN
     Indication: Infection
     Dosage: 2 G, 6ID
     Dates: start: 20210926, end: 20211005
  2. LOVENOX [Suspect]
     Active Substance: ENOXAPARIN SODIUM
     Indication: Thrombosis prophylaxis
     Dosage: 4000 IU, QD
     Route: 058
     Dates: start: 20210925
  3. DAPTOMYCIN [Suspect]
     Active Substance: DAPTOMYCIN
     Indication: Infection
     Dosage: UNK
     Dates: start: 20210930, end: 20211014

REACTIONS (1)
  - Rash maculo-papular [Not Recovered/Not Resolved]

NARRATIVE: CASE EVENT DATE: 20211005
